FAERS Safety Report 4679504-2 (Version None)
Quarter: 2005Q2

REPORT INFORMATION
  Report Type: 
  Country: None (occurrence: None)
  Receive Date: 20050311
  Receipt Date: 20050311
  Transmission Date: 20051028
  Serious: Yes (Other)
  Sender: FDA-Public Use
  Company Number: None

PATIENT
  Sex: Female

DRUGS (3)
  1. LORTAB [Suspect]
     Indication: BACK PAIN
     Dosage: 1 PO Q 4-6 PGS
     Route: 048
  2. LORTAB [Suspect]
     Indication: FIBROMYALGIA
     Dosage: 1 PO Q 4-6 PGS
     Route: 048
  3. LORTAB [Suspect]
     Indication: NECK PAIN
     Dosage: 1 PO Q 4-6 PGS
     Route: 048

REACTIONS (3)
  - DRUG EFFECT DECREASED [None]
  - PAIN [None]
  - PHARMACEUTICAL PRODUCT COMPLAINT [None]
